FAERS Safety Report 7819027-2 (Version None)
Quarter: 2011Q4

REPORT INFORMATION
  Report Type: 
  Country: None (occurrence: None)
  Receive Date: 20111018
  Receipt Date: 20111011
  Transmission Date: 20120403
  Serious: Yes (Other)
  Sender: FDA-Public Use
  Company Number: US-US-EMD SERONO, INC.-7089260

PATIENT
  Sex: Female

DRUGS (4)
  1. LIDOCAINE [Concomitant]
     Indication: INTERVERTEBRAL DISC PROTRUSION
  2. OXYCONTIN [Concomitant]
     Indication: INTERVERTEBRAL DISC PROTRUSION
  3. OXYCODONE HCL [Concomitant]
     Indication: INTERVERTEBRAL DISC PROTRUSION
  4. REBIF [Suspect]
     Indication: PRODUCT USED FOR UNKNOWN INDICATION
     Route: 058
     Dates: start: 20101116

REACTIONS (2)
  - INFLUENZA LIKE ILLNESS [None]
  - TRANSIENT ISCHAEMIC ATTACK [None]
